FAERS Safety Report 5973339-6 (Version None)
Quarter: 2008Q4

REPORT INFORMATION
  Report Type: 
  Country: None (occurrence: None)
  Receive Date: 20081201
  Receipt Date: 20081121
  Transmission Date: 20090506
  Serious: Yes (Hospitalization)
  Sender: FDA-Public Use
  Company Number: US-KINGPHARMUSA00001-K200801338

PATIENT
  Sex: Female

DRUGS (5)
  1. SEPTRA [Suspect]
     Indication: PROPHYLAXIS
     Dosage: UNK
     Dates: start: 20060101, end: 20070901
  2. REBIF [Suspect]
     Indication: MULTIPLE SCLEROSIS
     Dosage: 44 MCG, TIW
     Route: 058
     Dates: start: 20070101, end: 20070901
  3. REBIF [Suspect]
     Dosage: 44 MCG, TIW
     Route: 058
     Dates: start: 20071101
  4. CLARITIN                           /00917501/ [Concomitant]
     Indication: HYPERSENSITIVITY
     Dosage: UNK
     Dates: start: 20070801
  5. DITROPAN [Concomitant]
     Indication: BLADDER DISORDER
     Dosage: UNK

REACTIONS (5)
  - COAGULOPATHY [None]
  - DRUG HYPERSENSITIVITY [None]
  - EOSINOPHIL COUNT DECREASED [None]
  - HEADACHE [None]
  - LYMPHADENOPATHY [None]
